FAERS Safety Report 6673306-3 (Version None)
Quarter: 2010Q1

REPORT INFORMATION
  Report Type: 
  Country: None (occurrence: None)
  Receive Date: 20100329
  Receipt Date: 20090814
  Transmission Date: 20100710
  Serious: Yes (Other)
  Sender: FDA-Public Use
  Company Number: 2009255861

PATIENT
  Age: 18 Year
  Sex: Female

DRUGS (1)
  1. GEODON [Suspect]
     Dosage: 20 MG, 1X/DAY

REACTIONS (2)
  - DYSPNOEA [None]
  - DYSTONIA [None]
